FAERS Safety Report 10056717 (Version 2)
Quarter: 2014Q2

REPORT INFORMATION
  Report Type: Spontaneous
  Country: GB (occurrence: GB)
  Receive Date: 20140403
  Receipt Date: 20140418
  Transmission Date: 20141212
  Serious: Yes (Death, Other)
  Sender: FDA-Public Use
  Company Number: GB-MERCK-1403GBR013987

PATIENT
  Age: 65 Year
  Sex: Female

DRUGS (12)
  1. SIMVASTATIN [Suspect]
     Dosage: 20 MG, QD
     Route: 048
  2. METHOTREXATE [Suspect]
     Dosage: 5 MG, QW
  3. PREDNISOLONE [Suspect]
     Dosage: 15 MG, QD
  4. ABATACEPT [Suspect]
     Indication: RHEUMATOID ARTHRITIS
     Dosage: 750 MG, 2 INFUSIONS, QM
     Route: 042
     Dates: start: 201307
  5. FOLIC ACID [Suspect]
  6. HYDROXYCHLOROQUINE SULFATE [Suspect]
     Dosage: 200 MG, BID
  7. WARFARIN [Suspect]
  8. ALENDRONATE SODIUM [Concomitant]
     Dosage: 70 MG, QW
  9. CALCICHEW D3 [Concomitant]
     Dosage: FORTE 2 DAILY
  10. GLOBULIN, IMMUNE [Concomitant]
     Route: 058
  11. IODINE [Concomitant]
     Dosage: 600 MG, QD
  12. QUININE SULFATE [Concomitant]

REACTIONS (5)
  - Deep vein thrombosis [Fatal]
  - Wound [Fatal]
  - Vascular injury [Fatal]
  - General physical health deterioration [Fatal]
  - Fall [Unknown]
